FAERS Safety Report 9792760 (Version 1)
Quarter: 2013Q4

REPORT INFORMATION
  Report Type: Spontaneous
  Country: GB (occurrence: None)
  Receive Date: 20131230
  Receipt Date: 20131230
  Transmission Date: 20140711
  Serious: Yes (Other)
  Sender: FDA-Public Use
  Company Number: GB-ALKEM-000448

PATIENT
  Age: 58 Year
  Sex: Male

DRUGS (2)
  1. MYCOPHENOLATE MOFETIL [Suspect]
     Indication: SARCOIDOSIS
     Route: 048
     Dates: start: 20131128, end: 20131205
  2. METHOTREXATE (METHOTREXATE) [Concomitant]

REACTIONS (1)
  - Thrombocytopenia [None]
